FAERS Safety Report 16535480 (Version 1)
Quarter: 2019Q3

REPORT INFORMATION
  Report Type: Spontaneous
  Country: US (occurrence: US)
  Receive Date: 20190705
  Receipt Date: 20190705
  Transmission Date: 20191004
  Serious: No
  Sender: FDA-Public Use
  Company Number: US-PFIZER INC-2019271319

PATIENT
  Sex: Female

DRUGS (2)
  1. CORTISONE [Suspect]
     Active Substance: CORTISONE
     Dosage: 4 DF, UNK (HAD FOUR INJECTIONS OF CORTISONE 2 IN HER KNEES AND HIPS)
     Dates: start: 20190621, end: 20190621
  2. ADVIL [Suspect]
     Active Substance: IBUPROFEN
     Dosage: 1 DF, SINGLE
     Dates: start: 20190623, end: 20190623

REACTIONS (1)
  - Burning sensation [Unknown]

NARRATIVE: CASE EVENT DATE: 20190623
